FAERS Safety Report 16642417 (Version 1)
Quarter: 2019Q3

REPORT INFORMATION
  Report Type: Spontaneous
  Country: US (occurrence: US)
  Receive Date: 20190614
  Receipt Date: 20190614
  Transmission Date: 20191004
  Serious: Yes (Hospitalization)
  Sender: FDA-Public Use
  Company Number: None

PATIENT
  Age: 57 Year
  Sex: Male
  Weight: 70.17 kg

DRUGS (10)
  1. HARVONI [Suspect]
     Active Substance: LEDIPASVIR\SOFOSBUVIR
     Indication: HEPATITIS C
     Route: 048
     Dates: start: 20171201, end: 20180323
  2. DOXYCYCLINE. [Concomitant]
     Active Substance: DOXYCYCLINE
  3. BUPRENORPHINE. [Concomitant]
     Active Substance: BUPRENORPHINE
  4. LISINOPRIL. [Concomitant]
     Active Substance: LISINOPRIL
  5. COLACE [Concomitant]
     Active Substance: DOCUSATE SODIUM
  6. AZITHROMYCIN ANHYDROUS. [Concomitant]
     Active Substance: AZITHROMYCIN ANHYDROUS
  7. MUCINEX [Concomitant]
     Active Substance: GUAIFENESIN
  8. CEFTRIAXONE. [Concomitant]
     Active Substance: CEFTRIAXONE
  9. HYDROCHLORUTHIAZIDE [Concomitant]
  10. AMOXICILLIN. [Concomitant]
     Active Substance: AMOXICILLIN

REACTIONS (4)
  - Hyponatraemia [None]
  - Pneumonia [None]
  - Hypophagia [None]
  - Fatigue [None]

NARRATIVE: CASE EVENT DATE: 20180112
